FAERS Safety Report 7674642-4 (Version None)
Quarter: 2011Q3

REPORT INFORMATION
  Report Type: 
  Country: None (occurrence: None)
  Receive Date: 20110810
  Receipt Date: 20110809
  Transmission Date: 20111222
  Serious: Yes (Other)
  Sender: FDA-Public Use
  Company Number: US-ABBOTT-11P-163-0839918-00

PATIENT
  Sex: Female

DRUGS (7)
  1. TEGRETOL [Concomitant]
     Indication: CONVULSION
     Dosage: 2 IN 1 DAY, GENERIC VERSION
  2. METHOTREXATE [Concomitant]
     Indication: PSORIASIS
     Dosage: 3 TAB WEEKLY
  3. METOPROLOL TARTRATE [Concomitant]
     Indication: HYPERTENSION
  4. DOXAZOSIN MESYLATE [Concomitant]
     Indication: HYPERTENSION
     Dosage: DAILY
  5. HUMIRA [Suspect]
     Indication: PSORIASIS
     Dates: start: 20110406, end: 20110610
  6. CLONIDINE [Concomitant]
     Indication: HYPERTENSION
  7. ITCH PILL [Concomitant]
     Indication: PSORIASIS

REACTIONS (2)
  - ASTHENIA [None]
  - DIARRHOEA [None]
